FAERS Safety Report 7016554-5 (Version None)
Quarter: 2010Q3

REPORT INFORMATION
  Report Type: 
  Country: None (occurrence: None)
  Receive Date: 20100927
  Receipt Date: 20100923
  Transmission Date: 20110219
  Serious: Yes (Life-Threatening, Hospitalization)
  Sender: FDA-Public Use
  Company Number: A0881647A

PATIENT
  Age: 69 Year
  Sex: Female
  Weight: 62.3 kg

DRUGS (5)
  1. PAZOPANIB [Suspect]
     Indication: NON-SMALL CELL LUNG CANCER
     Route: 048
     Dates: start: 20100903
  2. ERLOTINIB HYDROCHLORIDE [Suspect]
     Indication: NON-SMALL CELL LUNG CANCER
     Route: 048
     Dates: start: 20100903
  3. ATIVAN [Concomitant]
     Indication: ANXIETY
     Dates: start: 20100601
  4. VICODIN [Concomitant]
     Indication: PAIN
     Dosage: 5MG AS REQUIRED
     Dates: start: 20100701
  5. MEGESTROL [Concomitant]
     Indication: INCREASED APPETITE
     Dosage: 400MG TWICE PER DAY
     Dates: start: 20100810

REACTIONS (9)
  - CONFUSIONAL STATE [None]
  - DYSARTHRIA [None]
  - HEMIPARESIS [None]
  - HYPONATRAEMIA [None]
  - HYPOTENSION [None]
  - RESPIRATORY FAILURE [None]
  - SEPSIS [None]
  - TACHYPNOEA [None]
  - URINARY TRACT INFECTION [None]
